FAERS Safety Report 6143779-3 (Version None)
Quarter: 2009Q2

REPORT INFORMATION
  Report Type: 
  Country: None (occurrence: None)
  Receive Date: 20090403
  Receipt Date: 20090326
  Transmission Date: 20091009
  Serious: Yes (Other)
  Sender: FDA-Public Use
  Company Number: PHHY2009GB05690

PATIENT
  Sex: Female
  Weight: 117.8 kg

DRUGS (6)
  1. CLOZARIL [Suspect]
     Indication: SCHIZOPHRENIA
     Dosage: 450 MG
     Dates: start: 20030529
  2. ZOPICLONE [Concomitant]
     Indication: INSOMNIA
     Dosage: 37.5MG
     Route: 048
  3. VENTOLIN [Concomitant]
     Indication: ASTHMA
     Dosage: 100 UG, PRN
  4. DIAZEPAM [Concomitant]
     Indication: ANXIETY
     Dosage: 2 MG, BID
     Route: 048
  5. ATENOLOL [Concomitant]
     Indication: HYPERTENSION
     Dosage: 25 MG, QD
  6. AMISULPRIDE [Concomitant]
     Indication: SCHIZOPHRENIA
     Dosage: 100 MG, BID
     Route: 048

REACTIONS (5)
  - ANXIETY [None]
  - CHOKING SENSATION [None]
  - DYSPHAGIA [None]
  - SALIVARY HYPERSECRETION [None]
  - WEIGHT INCREASED [None]
